FAERS Safety Report 21965981 (Version 1)
Quarter: 2023Q1

REPORT INFORMATION
  Report Type: Spontaneous
  Country: LT (occurrence: LT)
  Receive Date: 20230208
  Receipt Date: 20230208
  Transmission Date: 20230417
  Serious: Yes (Other)
  Sender: FDA-Public Use
  Company Number: LT-JNJFOC-20230147917

PATIENT
  Sex: Female

DRUGS (8)
  1. CARFILZOMIB [Suspect]
     Active Substance: CARFILZOMIB
     Indication: Plasma cell myeloma
     Dosage: 50 MILLIGRAM (DAY 1-2, 8-9,)
     Route: 065
     Dates: start: 20221108, end: 20230104
  2. DARZALEX [Suspect]
     Active Substance: DARATUMUMAB
     Indication: Plasma cell myeloma
     Dosage: 1200 MILLIGRAM (DAY 1)
     Route: 065
     Dates: start: 20221108, end: 20230104
  3. THALOMID [Suspect]
     Active Substance: THALIDOMIDE
     Indication: Plasma cell myeloma
     Dosage: 100 MILLIGRAM, QD
     Route: 065
     Dates: start: 20221108, end: 20230104
  4. ETOPOSIDE [Suspect]
     Active Substance: ETOPOSIDE
     Indication: Plasma cell myeloma
     Dosage: DAY 4-7
     Route: 065
     Dates: start: 20221108, end: 20230104
  5. DOXORUBICIN [Suspect]
     Active Substance: DOXORUBICIN
     Indication: Plasma cell myeloma
     Dosage: 19 MILLIGRAM (DAY 4 -7)
     Route: 065
     Dates: start: 20221108, end: 20230104
  6. CYCLOPHOSPHAMIDE [Suspect]
     Active Substance: CYCLOPHOSPHAMIDE
     Indication: Plasma cell myeloma
     Dosage: 800 MILLIGRAM (DAY 4-7)
     Route: 065
     Dates: start: 20221108, end: 20230104
  7. DEXAMETHASONE [Suspect]
     Active Substance: DEXAMETHASONE
     Indication: Plasma cell myeloma
     Dosage: DAY1 -2, 8-9
     Route: 065
     Dates: start: 20221108, end: 20230104
  8. CISPLATIN [Suspect]
     Active Substance: CISPLATIN
     Indication: Plasma cell myeloma
     Dosage: 19 MILLIGRAM (DAY 4-7)
     Route: 065
     Dates: start: 20221108, end: 20230104

REACTIONS (3)
  - Pulmonary alveolar haemorrhage [Unknown]
  - Therapeutic response decreased [Unknown]
  - Off label use [Unknown]
